FAERS Safety Report 9215527 (Version 4)
Quarter: 2013Q4

REPORT INFORMATION
  Report Type: Spontaneous
  Country: US (occurrence: US)
  Receive Date: 20130406
  Receipt Date: 20131122
  Transmission Date: 20140711
  Serious: Yes (Hospitalization)
  Sender: FDA-Public Use
  Company Number: US-B.I. PHARMACEUTICALS,INC./RIDGEFIELD-2013-BI-09308BP

PATIENT
  Sex: Male
  Weight: 122.47 kg

DRUGS (13)
  1. PRADAXA [Suspect]
     Indication: ATRIAL FIBRILLATION
     Dosage: 300 MG
     Route: 048
     Dates: start: 20111105, end: 20120326
  2. ASPIRIN [Concomitant]
     Dosage: 81 MG
     Route: 048
  3. LISINOPRIL [Concomitant]
     Dosage: 20 MG
     Route: 048
  4. PROCARDIA [Concomitant]
     Dosage: 60 MG
     Route: 048
  5. LASIX [Concomitant]
     Dosage: 40 MG
     Route: 048
  6. NEXIUM [Concomitant]
     Indication: DYSPEPSIA
     Dosage: 40 MG
     Route: 048
  7. CYMBALTA [Concomitant]
     Dosage: 60 MG
     Route: 048
  8. LIPITOR [Concomitant]
     Dosage: 80 MG
     Route: 048
  9. NOVOLIN [Concomitant]
     Route: 058
  10. INSULIN [Concomitant]
  11. ADVAIR [Concomitant]
     Dosage: 2 PUF
     Route: 055
  12. SPIRIVA [Concomitant]
     Dosage: 18 MCG
     Route: 055
  13. PROAIR [Concomitant]
     Route: 055

REACTIONS (3)
  - Lower gastrointestinal haemorrhage [Unknown]
  - Contusion [Unknown]
  - Anaemia [Unknown]
